FAERS Safety Report 8167410 (Version 2)
Quarter: 2012Q4

REPORT INFORMATION
  Report Type: 
  Country: US (occurrence: US)
  Receive Date: 20111004
  Receipt Date: 20121008
  Transmission Date: 20130627
  Serious: Yes (Other)
  Sender: FDA-Public Use
  Company Number: US-BAYER-2011-093112

PATIENT
  Age: 37 Year
  Sex: Female
  Weight: 70.75 kg

DRUGS (4)
  1. MIRENA [Suspect]
     Indication: CONTRACEPTION
     Dosage: 20 mcg/24hr, CONT
     Route: 015
     Dates: start: 2008, end: 2011
  2. SYNTHROID [Concomitant]
  3. ARMOUR THYROID [Concomitant]
  4. GABAPENTIN [Concomitant]

REACTIONS (2)
  - Pregnancy with contraceptive device [Recovered/Resolved]
  - Device dislocation [Not Recovered/Not Resolved]
